FAERS Safety Report 26167451 (Version 1)
Quarter: 2025Q4

REPORT INFORMATION
  Report Type: Report from Study
  Country: IN (occurrence: IN)
  Receive Date: 20251217
  Receipt Date: 20251217
  Transmission Date: 20260118
  Serious: Yes (Death)
  Sender: ALEXION PHARMACEUTICALS
  Company Number: IN-AstraZeneca-CH-01013153A

PATIENT
  Sex: Female
  Weight: 41 kg

DRUGS (1)
  1. TAGRISSO [Suspect]
     Active Substance: OSIMERTINIB
     Indication: Metastases to biliary tract
     Dosage: 1500 MILLIGRAM, Q3W

REACTIONS (3)
  - Organ failure [Fatal]
  - Vomiting [Fatal]
  - Diarrhoea [Fatal]
